FAERS Safety Report 15374865 (Version 1)
Quarter: 2018Q3

REPORT INFORMATION
  Report Type: Spontaneous
  Country: FR (occurrence: FR)
  Receive Date: 20180912
  Receipt Date: 20180912
  Transmission Date: 20181010
  Serious: Yes (Congenital Anomaly)
  Sender: FDA-Public Use
  Company Number: FR-MERCK KGAA-2054865

PATIENT
  Sex: Male

DRUGS (2)
  1. THYROZOL 20 MG [Suspect]
     Active Substance: METHIMAZOLE
  2. NOVOTHYROX [Suspect]
     Active Substance: LEVOTHYROXINE SODIUM
     Indication: BASEDOW^S DISEASE

REACTIONS (5)
  - Oesophageal atresia [Not Recovered/Not Resolved]
  - Hyperthyroidism [Not Recovered/Not Resolved]
  - Thyroid stimulating immunoglobulin [Not Recovered/Not Resolved]
  - Syndactyly [Not Recovered/Not Resolved]
  - Tracheo-oesophageal fistula [Not Recovered/Not Resolved]

NARRATIVE: CASE EVENT DATE: 20180401
